FAERS Safety Report 13340353 (Version 2)
Quarter: 2017Q2

REPORT INFORMATION
  Report Type: Spontaneous
  Country: GB (occurrence: GB)
  Receive Date: 20170316
  Receipt Date: 20170411
  Transmission Date: 20170830
  Serious: Yes (Other)
  Sender: FDA-Public Use
  Company Number: GB-LEO PHARMA-245361

PATIENT
  Age: 75 Year
  Sex: Male

DRUGS (14)
  1. ATORVASTATIN [Concomitant]
     Active Substance: ATORVASTATIN
     Indication: CARDIOVASCULAR EVENT PROPHYLAXIS
  2. LACTULOSE. [Concomitant]
     Active Substance: LACTULOSE
     Indication: CONSTIPATION
  3. COCODAMOL [Concomitant]
     Active Substance: ACETAMINOPHEN\CODEINE PHOSPHATE
     Indication: ABDOMINAL PAIN
     Dosage: 8MG/500MG
     Route: 048
     Dates: start: 20160914
  4. PICATO [Suspect]
     Active Substance: INGENOL MEBUTATE
     Indication: ACTINIC KERATOSIS
     Route: 061
     Dates: start: 20160908, end: 20160909
  5. AVAMYS [Concomitant]
     Active Substance: FLUTICASONE FUROATE
     Indication: NASAL CONGESTION
     Dosage: TWO PUFFS
     Route: 045
  6. ISPAGHULA EXTRACT\PSYLLIUM [Concomitant]
     Active Substance: PLANTAGO OVATA SEED\PLANTAGO SEED
     Indication: DIVERTICULUM
     Route: 048
  7. SILDENAFIL. [Concomitant]
     Active Substance: SILDENAFIL
     Indication: ERECTILE DYSFUNCTION
     Route: 048
  8. GAVISCON [Concomitant]
     Active Substance: ALUMINUM HYDROXIDE\MAGNESIUM CARBONATE
     Indication: DYSPEPSIA
     Route: 048
  9. DEPO-MEDRONE [Concomitant]
     Active Substance: METHYLPREDNISOLONE
     Indication: BURSITIS
     Dosage: 80MG/2ML
  10. OMEPRAZOLE. [Concomitant]
     Active Substance: OMEPRAZOLE
     Indication: DYSPEPSIA
  11. METRONIDAZOLE. [Concomitant]
     Active Substance: METRONIDAZOLE
     Indication: DIVERTICULITIS
     Route: 048
     Dates: start: 20160914
  12. LACTULOSE. [Concomitant]
     Active Substance: LACTULOSE
     Indication: DIVERTICULUM
     Dosage: 3.1-3.7G/5ML
     Route: 048
  13. ATORVASTATIN [Concomitant]
     Active Substance: ATORVASTATIN
     Indication: BLOOD CHOLESTEROL INCREASED
     Dosage: 1 TO BE TAKEN AFTER EVENING MEAL
     Route: 048
  14. LIDOCAINE. [Concomitant]
     Active Substance: LIDOCAINE
     Indication: BURSITIS
     Dosage: 100MG/10ML ( 1 % )

REACTIONS (8)
  - Application site vesicles [Recovered/Resolved]
  - Application site scar [Recovered/Resolved]
  - Application site exfoliation [Recovered/Resolved]
  - Application site mass [Recovered/Resolved]
  - Application site scab [Recovered/Resolved]
  - Incorrect drug administration duration [Unknown]
  - Application site burn [Recovered/Resolved with Sequelae]
  - Application site erosion [Recovered/Resolved]

NARRATIVE: CASE EVENT DATE: 20160909
